FAERS Safety Report 7561751-3 (Version None)
Quarter: 2011Q2

REPORT INFORMATION
  Report Type: 
  Country: None (occurrence: None)
  Receive Date: 20110621
  Receipt Date: 20110612
  Transmission Date: 20111010
  Serious: Yes (Other)
  Sender: FDA-Public Use
  Company Number: US-AMGEN-USASP2011021190

PATIENT
  Age: 51 Year
  Sex: Female

DRUGS (4)
  1. ENBREL [Suspect]
     Indication: DEPRESSION
  2. ENBREL [Suspect]
     Indication: RHEUMATOID ARTHRITIS
     Dosage: 50 MG, QWK
     Dates: start: 20110201
  3. METHOTREXATE [Concomitant]
  4. ENBREL [Suspect]
     Indication: FIBROMYALGIA
     Dosage: 50 MG, QWK
     Dates: start: 20110201, end: 20110501

REACTIONS (14)
  - NAUSEA [None]
  - NECK PAIN [None]
  - MUSCULOSKELETAL STIFFNESS [None]
  - DIARRHOEA [None]
  - MYALGIA [None]
  - HEADACHE [None]
  - ANXIETY [None]
  - DEPRESSION [None]
  - SWELLING [None]
  - MEMORY IMPAIRMENT [None]
  - PAIN IN JAW [None]
  - MALAISE [None]
  - GAIT DISTURBANCE [None]
  - RHEUMATOID ARTHRITIS [None]
